FAERS Safety Report 24440415 (Version 1)
Quarter: 2024Q4

REPORT INFORMATION
  Report Type: Spontaneous
  Country: US (occurrence: US)
  Receive Date: 20241016
  Receipt Date: 20241016
  Transmission Date: 20250114
  Serious: No
  Sender: RANBAXY
  Company Number: US-SUN PHARMACEUTICAL INDUSTRIES LTD-2024R1-463980

PATIENT
  Age: 57 Year
  Sex: Female
  Weight: 97 kg

DRUGS (1)
  1. WINLEVI [Suspect]
     Active Substance: CLASCOTERONE
     Indication: Acne
     Dosage: UNK UNK, BID
     Route: 062
     Dates: start: 20240822

REACTIONS (2)
  - Product temperature excursion issue [Unknown]
  - Product use issue [Unknown]
